FAERS Safety Report 17119889 (Version 1)
Quarter: 2019Q4

REPORT INFORMATION
  Report Type: Spontaneous
  Country: US (occurrence: US)
  Receive Date: 20191113
  Receipt Date: 20191113
  Transmission Date: 20200122
  Serious: Yes (Hospitalization)
  Sender: FDA-Public Use
  Company Number: None

PATIENT
  Age: 79 Year
  Sex: Female

DRUGS (1)
  1. IBRANCE [Suspect]
     Active Substance: PALBOCICLIB
     Indication: BREAST CANCER
     Route: 048
     Dates: start: 201906

REACTIONS (4)
  - Pulmonary embolism [None]
  - Sepsis [None]
  - Loss of consciousness [None]
  - Renal impairment [None]

NARRATIVE: CASE EVENT DATE: 20191111
